FAERS Safety Report 5143959-X (Version None)
Quarter: 2006Q4

REPORT INFORMATION
  Report Type: 
  Country: None (occurrence: None)
  Receive Date: 20061030
  Receipt Date: 20061016
  Transmission Date: 20070319
  Serious: Yes (Hospitalization)
  Sender: FDA-Public Use
  Company Number: US200608004158

PATIENT
  Age: 48 Year
  Sex: Female

DRUGS (6)
  1. HUMALOG MIX 75/25 [Suspect]
     Indication: DIABETES MELLITUS NON-INSULIN-DEPENDENT
     Dates: start: 20060817, end: 20060817
  2. HUMALOG [Suspect]
     Dates: start: 20060822
  3. HUMALOG MIX 25/75NPL PEN (HUMALOG MIX 25L/75NPL PEN) [Concomitant]
  4. PRANDIN (DEFLAZACORT) [Concomitant]
  5. AVANDIA [Concomitant]
  6. ALTACE [Concomitant]

REACTIONS (16)
  - ANXIETY [None]
  - CHEST DISCOMFORT [None]
  - CHEST PAIN [None]
  - CRYING [None]
  - DIZZINESS [None]
  - DRUG INEFFECTIVE [None]
  - DYSPNOEA [None]
  - EAR CONGESTION [None]
  - FEAR [None]
  - FEELING ABNORMAL [None]
  - GESTATIONAL DIABETES [None]
  - HYPERHIDROSIS [None]
  - PHARMACEUTICAL PRODUCT COMPLAINT [None]
  - PRURITUS [None]
  - RASH [None]
  - RHINORRHOEA [None]
